FAERS Safety Report 4301177-9 (Version None)
Quarter: 2004Q1

REPORT INFORMATION
  Report Type: 
  Country: None (occurrence: None)
  Receive Date: 20040218
  Receipt Date: 20040119
  Transmission Date: 20041129
  Serious: No
  Sender: FDA-Public Use
  Company Number: 2004-01-1347

PATIENT

DRUGS (1)
  1. PEG-INTRON [Suspect]
     Route: 058
     Dates: end: 20040101

REACTIONS (1)
  - HYPERTENSION [None]
